FAERS Safety Report 6082181-X (Version None)
Quarter: 2009Q1

REPORT INFORMATION
  Report Type: 
  Country: None (occurrence: None)
  Receive Date: 20090218
  Receipt Date: 20090212
  Transmission Date: 20090719
  Serious: Yes (Hospitalization, Other)
  Sender: FDA-Public Use
  Company Number: A0768220A

PATIENT
  Age: 75 Year
  Sex: Female

DRUGS (5)
  1. COREG CR [Suspect]
     Indication: HYPERTENSION
     Dosage: 10MG PER DAY
     Route: 048
     Dates: start: 20081001, end: 20081101
  2. LIPITOR [Concomitant]
  3. DIOVAN [Concomitant]
  4. SYNTHROID [Concomitant]
  5. PREMARIN [Concomitant]

REACTIONS (3)
  - CARDIAC PACEMAKER INSERTION [None]
  - FATIGUE [None]
  - FEELING ABNORMAL [None]
